FAERS Safety Report 25096605 (Version 1)
Quarter: 2025Q1

REPORT INFORMATION
  Report Type: Spontaneous
  Country: US (occurrence: US)
  Receive Date: 20250319
  Receipt Date: 20250319
  Transmission Date: 20250408
  Serious: No
  Sender: EMERGENT BIOSOLUTIONS
  Company Number: US-EMERGENT BIOSOLUTIONS-25000031

PATIENT
  Sex: Female

DRUGS (1)
  1. NARCAN [Suspect]
     Active Substance: NALOXONE HYDROCHLORIDE
     Indication: Product used for unknown indication
     Route: 065
     Dates: start: 20250309

REACTIONS (3)
  - Motor dysfunction [Recovering/Resolving]
  - Confusional state [Recovering/Resolving]
  - Cognitive disorder [Recovering/Resolving]

NARRATIVE: CASE EVENT DATE: 20250301
